FAERS Safety Report 24919734 (Version 2)
Quarter: 2025Q1

REPORT INFORMATION
  Report Type: Spontaneous
  Country: JP (occurrence: JP)
  Receive Date: 20250204
  Receipt Date: 20250221
  Transmission Date: 20250408
  Serious: Yes (Other)
  Sender: EMD SERONO INC
  Company Number: JP-Merck Healthcare KGaA-2025004925

PATIENT
  Age: 8 Decade
  Sex: Male

DRUGS (1)
  1. METGLUCO [Suspect]
     Active Substance: METFORMIN HYDROCHLORIDE
     Indication: Type 2 diabetes mellitus
     Dosage: 250 MG, 6 TABLETS PER DAY FOR MORE THAN 20 YEARS AND LESS THAN 25 YEARS

REACTIONS (2)
  - Renal impairment [Unknown]
  - Diarrhoea [Recovered/Resolved]
